FAERS Safety Report 23006145 (Version 2)
Quarter: 2023Q4

REPORT INFORMATION
  Report Type: Report from Study
  Country: CA (occurrence: CA)
  Receive Date: 20230929
  Receipt Date: 20231013
  Transmission Date: 20240109
  Serious: Yes (Death)
  Sender: FDA-Public Use
  Company Number: CA-002147023-NVSC2023CA209842

PATIENT
  Age: 60 Year
  Sex: Male

DRUGS (1)
  1. PROMACTA [Suspect]
     Active Substance: ELTROMBOPAG OLAMINE
     Indication: Thrombocytopenia
     Dosage: 150 MG
     Route: 048
     Dates: start: 202301, end: 20230804

REACTIONS (4)
  - Legionella infection [Fatal]
  - Pneumonia [Fatal]
  - Enteritis infectious [Fatal]
  - Jaundice [Unknown]
